FAERS Safety Report 7381378-6 (Version None)
Quarter: 2011Q1

REPORT INFORMATION
  Report Type: 
  Country: None (occurrence: None)
  Receive Date: 20110324
  Receipt Date: 20110324
  Transmission Date: 20110831
  Serious: Yes (Life-Threatening, Disabling, Other)
  Sender: FDA-Public Use
  Company Number: None

PATIENT
  Sex: Male
  Weight: 134.2647 kg

DRUGS (1)
  1. RISPERDAL [Suspect]
     Dosage: 50 MG 2 WEEKS
     Dates: start: 20040101, end: 20110101

REACTIONS (5)
  - EJACULATION FAILURE [None]
  - HALLUCINATIONS, MIXED [None]
  - WEIGHT INCREASED [None]
  - ERECTILE DYSFUNCTION [None]
  - PHOTOPHOBIA [None]
